FAERS Safety Report 26068197 (Version 1)
Quarter: 2025Q4

REPORT INFORMATION
  Report Type: Report from Study
  Country: US (occurrence: US)
  Receive Date: 20251120
  Receipt Date: 20251120
  Transmission Date: 20260117
  Serious: Yes (Other)
  Sender: SANOFI AVENTIS
  Company Number: US-SA-2025SA342691

PATIENT
  Sex: Male

DRUGS (7)
  1. DUPILUMAB [Suspect]
     Active Substance: DUPILUMAB
     Indication: Asthma
     Route: 065
     Dates: start: 20250925, end: 202511
  2. DUPILUMAB [Suspect]
     Active Substance: DUPILUMAB
     Indication: Rhinitis allergic
  3. DUPILUMAB [Suspect]
     Active Substance: DUPILUMAB
     Indication: Obstructive sleep apnoea syndrome
  4. DUPILUMAB [Suspect]
     Active Substance: DUPILUMAB
     Indication: Gastrooesophageal reflux disease
  5. DUPILUMAB [Suspect]
     Active Substance: DUPILUMAB
     Indication: Essential hypertension
  6. DUPILUMAB [Suspect]
     Active Substance: DUPILUMAB
     Indication: Chronic obstructive pulmonary disease
  7. DUPILUMAB [Suspect]
     Active Substance: DUPILUMAB
     Indication: COVID-19

REACTIONS (2)
  - Pleurisy [Unknown]
  - Product use in unapproved indication [Unknown]

NARRATIVE: CASE EVENT DATE: 20250101
